FAERS Safety Report 9571443 (Version 1)
Quarter: 2013Q4

REPORT INFORMATION
  Report Type: Spontaneous
  Country: US (occurrence: US)
  Receive Date: 20131001
  Receipt Date: 20131001
  Transmission Date: 20140711
  Serious: No
  Sender: FDA-Public Use
  Company Number: US-BAYER-2013-116163

PATIENT
  Age: 54 Year
  Sex: Female

DRUGS (1)
  1. FINACEA [Suspect]
     Indication: SKIN DISCOLOURATION
     Dosage: UNK
     Dates: start: 20130920, end: 20130923

REACTIONS (1)
  - Burning sensation [Unknown]
